FAERS Safety Report 9557468 (Version 10)
Quarter: 2013Q4

REPORT INFORMATION
  Report Type: Report from Study
  Country: CA (occurrence: CA)
  Receive Date: 20130926
  Receipt Date: 20131127
  Transmission Date: 20140711
  Serious: Yes (Hospitalization, Other)
  Sender: FDA-Public Use
  Company Number: CA-ABBVIE-13P-028-1129396-00

PATIENT
  Age: 36 Year
  Sex: Female

DRUGS (4)
  1. HUMIRA [Suspect]
     Indication: CROHN^S DISEASE
     Route: 058
     Dates: start: 20121112, end: 201309
  2. HUMIRA [Suspect]
     Route: 058
     Dates: start: 201309
  3. UNSPECIFIED MEDICATION [Concomitant]
     Indication: PRODUCT USED FOR UNKNOWN INDICATION
  4. ENTOCORT [Concomitant]
     Indication: PRODUCT USED FOR UNKNOWN INDICATION

REACTIONS (26)
  - Obstruction [Not Recovered/Not Resolved]
  - Abdominal distension [Recovering/Resolving]
  - Colitis [Unknown]
  - Functional gastrointestinal disorder [Not Recovered/Not Resolved]
  - Gastrointestinal inflammation [Not Recovered/Not Resolved]
  - Vomiting [Not Recovered/Not Resolved]
  - Constipation [Recovered/Resolved]
  - Diarrhoea [Not Recovered/Not Resolved]
  - Crying [Recovered/Resolved]
  - Parosmia [Not Recovered/Not Resolved]
  - Parosmia [Not Recovered/Not Resolved]
  - Parosmia [Not Recovered/Not Resolved]
  - Haematochezia [Not Recovered/Not Resolved]
  - Weight decreased [Not Recovered/Not Resolved]
  - Hypophagia [Not Recovered/Not Resolved]
  - Weight decreased [Not Recovered/Not Resolved]
  - Abdominal pain [Unknown]
  - Frequent bowel movements [Unknown]
  - Diarrhoea [Not Recovered/Not Resolved]
  - Diarrhoea [Recovering/Resolving]
  - Vomiting [Recovered/Resolved]
  - Vomiting [Not Recovered/Not Resolved]
  - Diarrhoea [Not Recovered/Not Resolved]
  - Dehydration [Unknown]
  - Abdominal pain [Not Recovered/Not Resolved]
  - Abdominal pain [Not Recovered/Not Resolved]
